FAERS Safety Report 5740933-7 (Version None)
Quarter: 2008Q2

REPORT INFORMATION
  Report Type: 
  Country: None (occurrence: None)
  Receive Date: 20080516
  Receipt Date: 20080507
  Transmission Date: 20081010
  Serious: Yes (Disabling, Other)
  Sender: FDA-Public Use
  Company Number: US-PFIZER INC-2008033027

PATIENT
  Sex: Male

DRUGS (6)
  1. CELEBREX [Suspect]
     Indication: ARTHRITIS
     Route: 048
     Dates: start: 20000101, end: 20071201
  2. METOPROLOL TARTRATE [Concomitant]
  3. FEXOFENADINE [Concomitant]
     Indication: HYPERSENSITIVITY
  4. LOVASTATIN [Concomitant]
  5. LEVOTHYROXINE SODIUM [Concomitant]
  6. OMEPRAZOLE [Concomitant]

REACTIONS (4)
  - HAEMATEMESIS [None]
  - HAEMATOCHEZIA [None]
  - HAEMORRHAGE [None]
  - RHEUMATOID ARTHRITIS [None]
